FAERS Safety Report 9499965 (Version 1)
Quarter: 2013Q3

REPORT INFORMATION
  Report Type: Spontaneous
  Country: US (occurrence: US)
  Receive Date: 20130905
  Receipt Date: 20130905
  Transmission Date: 20140515
  Serious: No
  Sender: FDA-Public Use
  Company Number: US-PFIZER INC-2013254687

PATIENT
  Sex: Male

DRUGS (2)
  1. LYRICA [Suspect]
     Indication: LIMB DISCOMFORT
     Dosage: UNK, 1X/DAY
     Dates: start: 201308, end: 201308
  2. LYRICA [Suspect]
     Dosage: UNK, 2X/DAY
     Dates: start: 201308

REACTIONS (1)
  - Drug ineffective [Unknown]
